FAERS Safety Report 21917255 (Version 10)
Quarter: 2023Q2

REPORT INFORMATION
  Report Type: Spontaneous
  Country: US (occurrence: US)
  Receive Date: 20230126
  Receipt Date: 20230628
  Transmission Date: 20230721
  Serious: Yes (Other)
  Sender: FDA-Public Use
  Company Number: US-Calliditas-2023CAL00056

PATIENT
  Age: 76 Year
  Sex: Male
  Weight: 75.6 kg

DRUGS (11)
  1. TARPEYO [Suspect]
     Active Substance: BUDESONIDE
     Indication: IgA nephropathy
     Dosage: 16 MG (4 MG CAPSULES) ONCE DAILY
     Route: 048
     Dates: start: 20230117
  2. SODIUM BICARBONATE [Concomitant]
     Active Substance: SODIUM BICARBONATE
     Dosage: 750 MG 2 TABLETS TWICE A DAY
  3. LOSARTAN [Concomitant]
     Active Substance: LOSARTAN
  4. AMLODIPINE [Concomitant]
     Active Substance: AMLODIPINE BESYLATE
  5. ALLOPURINOL [Concomitant]
     Active Substance: ALLOPURINOL
     Indication: Renal lithiasis prophylaxis
  6. LEVOTHYROXINE [Concomitant]
     Active Substance: LEVOTHYROXINE
     Indication: Thyroid disorder
  7. CREON [Concomitant]
     Active Substance: PANCRELIPASE AMYLASE\PANCRELIPASE LIPASE\PANCRELIPASE PROTEASE
     Indication: Pancreatic disorder
     Dosage: 10000 UNITS
     Dates: start: 2013
  8. DEVROM [Concomitant]
     Active Substance: BISMUTH SUBGALLATE
  9. ASPIRIN [Concomitant]
     Active Substance: ASPIRIN
  10. ZINCUM [ZINC] [Concomitant]
  11. FISH OIL [Concomitant]
     Active Substance: FISH OIL

REACTIONS (25)
  - Product residue present [Recovered/Resolved]
  - Wrong technique in product usage process [Not Recovered/Not Resolved]
  - Increased appetite [Not Recovered/Not Resolved]
  - Weight increased [Not Recovered/Not Resolved]
  - Oedema [Not Recovered/Not Resolved]
  - Peripheral swelling [Not Recovered/Not Resolved]
  - Cushingoid [Not Recovered/Not Resolved]
  - Hypertension [Recovering/Resolving]
  - Bile duct stone [Recovering/Resolving]
  - Biliary obstruction [Recovering/Resolving]
  - Product dose omission issue [Recovered/Resolved]
  - Blood glucose increased [Not Recovered/Not Resolved]
  - Energy increased [Not Recovered/Not Resolved]
  - Psychomotor hyperactivity [Unknown]
  - Face oedema [Not Recovered/Not Resolved]
  - Oedema peripheral [Not Recovered/Not Resolved]
  - Dyspnoea exertional [Unknown]
  - Dyspnoea [Unknown]
  - Pancreatitis [Unknown]
  - Gastrointestinal procedural complication [Unknown]
  - Heart rate increased [Unknown]
  - Respiratory rate increased [Unknown]
  - Localised oedema [Unknown]
  - Cataract [Unknown]
  - Gastrointestinal stoma complication [Unknown]

NARRATIVE: CASE EVENT DATE: 20230101
